FAERS Safety Report 11457400 (Version 1)
Quarter: 2015Q3

REPORT INFORMATION
  Report Type: Spontaneous
  Country: US (occurrence: None)
  Receive Date: 20150903
  Receipt Date: 20150903
  Transmission Date: 20151125
  Serious: Yes (Hospitalization)
  Sender: FDA-Public Use
  Company Number: None

PATIENT
  Age: 54 Year
  Sex: Male
  Weight: 84.9 kg

DRUGS (4)
  1. 5-FLUOROURACIL (5-FU) [Suspect]
     Active Substance: FLUOROURACIL
     Dates: end: 20150810
  2. LEUCOVORIN CALCIUM. [Suspect]
     Active Substance: LEUCOVORIN CALCIUM
     Dates: end: 20150810
  3. ELOXATIN [Suspect]
     Active Substance: OXALIPLATIN
     Dates: end: 20150810
  4. DECADRON [Concomitant]
     Active Substance: DEXAMETHASONE

REACTIONS (11)
  - Encephalopathy [None]
  - Dyspnoea [None]
  - Renal failure [None]
  - Colitis [None]
  - Sepsis [None]
  - Respiratory failure [None]
  - Sinus tachycardia [None]
  - Diabetic ketoacidosis [None]
  - Speech disorder [None]
  - Pyrexia [None]
  - Dehydration [None]

NARRATIVE: CASE EVENT DATE: 20150819
